FAERS Safety Report 11936851 (Version 2)
Quarter: 2016Q1

REPORT INFORMATION
  Report Type: Report from Study
  Country: DE (occurrence: DE)
  Receive Date: 20160121
  Receipt Date: 20160127
  Transmission Date: 20160526
  Serious: Yes (Hospitalization)
  Sender: FDA-Public Use
  Company Number: PHHO2016DE001066

PATIENT
  Age: 26 Year
  Sex: Male
  Weight: 78 kg

DRUGS (4)
  1. BLINDED AIN457 [Suspect]
     Active Substance: SECUKINUMAB
     Indication: PSORIASIS
     Dosage: UNK UNK, NO TREATMENT
     Route: 058
  2. BLINDED NO TREATMENT RECEIVED [Suspect]
     Active Substance: INVESTIGATIONAL PRODUCT
     Indication: PSORIASIS
     Dosage: UNK UNK, NO TREATMENT
     Route: 058
  3. BLINDED PLACEBO [Suspect]
     Active Substance: INVESTIGATIONAL PRODUCT
     Indication: PSORIASIS
     Dosage: UNK UNK, NO TREATMENT
     Route: 058
  4. AIN457 [Suspect]
     Active Substance: SECUKINUMAB
     Indication: PSORIASIS
     Dosage: 2 X150 MG,
     Route: 058
     Dates: start: 20151110

REACTIONS (1)
  - Accident [Recovered/Resolved]

NARRATIVE: CASE EVENT DATE: 20160109
